FAERS Safety Report 7253566-0 (Version None)
Quarter: 2011Q1

REPORT INFORMATION
  Report Type: 
  Country: None (occurrence: None)
  Receive Date: 20110129
  Receipt Date: 20100326
  Transmission Date: 20110831
  Serious: No
  Sender: FDA-Public Use
  Company Number: US-ABBOTT-10P-163-0635882-00

PATIENT
  Sex: Female
  Weight: 74.91 kg

DRUGS (4)
  1. DECLINE LONG LIST OF MEDICATION [Concomitant]
     Indication: PRODUCT USED FOR UNKNOWN INDICATION
  2. HUMIRA [Suspect]
     Indication: CROHN'S DISEASE
     Dosage: LOADING DOSE
     Dates: start: 20100227
  3. HUMIRA [Suspect]
     Indication: RHEUMATOID ARTHRITIS
  4. BYETTA [Concomitant]
     Indication: PRODUCT USED FOR UNKNOWN INDICATION

REACTIONS (2)
  - ABDOMINAL PAIN UPPER [None]
  - INJECTION SITE PAIN [None]
